FAERS Safety Report 9999191 (Version 1)
Quarter: 2014Q1

REPORT INFORMATION
  Report Type: Spontaneous
  Country: TR (occurrence: None)
  Receive Date: 20140310
  Receipt Date: 20140310
  Transmission Date: 20141002
  Serious: Yes (Other)
  Sender: FDA-Public Use
  Company Number: 2014P1001843

PATIENT
  Age: 26 Year
  Sex: Female

DRUGS (6)
  1. METHYLPREDNISOLONE [Suspect]
     Indication: ANGIOPATHY
  2. IMMUNOGLOBULINS [Suspect]
     Indication: THROMBOCYTOPENIC PURPURA
     Dosage: 0.4 GM/KG;QD;IV
     Route: 042
  3. UNSPECIFIED ORAL CONTRACEPTIVES [Suspect]
     Indication: MENORRHAGIA
  4. ELTROMBOPAG [Suspect]
     Indication: THROMBOCYTOPENIC PURPURA
  5. DANAZOL [Suspect]
     Indication: THROMBOCYTOPENIC PURPURA
  6. VINCRISTINE [Suspect]
     Indication: THROMBOCYTOPENIC PURPURA

REACTIONS (2)
  - Intracardiac thrombus [None]
  - Pulmonary artery thrombosis [None]
